FAERS Safety Report 21654993 (Version 2)
Quarter: 2023Q1

REPORT INFORMATION
  Report Type: Spontaneous
  Country: US (occurrence: None)
  Receive Date: 20221129
  Receipt Date: 20230103
  Transmission Date: 20230417
  Serious: No
  Sender: FDA-Public Use
  Company Number: 2022A378807

PATIENT
  Age: 60 Year
  Sex: Male

DRUGS (2)
  1. FASENRA [Suspect]
     Active Substance: BENRALIZUMAB
     Indication: Asthma
     Route: 058
  2. RESLIZUMAB [Concomitant]
     Active Substance: RESLIZUMAB

REACTIONS (1)
  - Nasal congestion [Unknown]
